FAERS Safety Report 4475164-4 (Version None)
Quarter: 2004Q4

REPORT INFORMATION
  Report Type: 
  Country: None (occurrence: None)
  Receive Date: 20041012
  Receipt Date: 20040930
  Transmission Date: 20050328
  Serious: Yes (Hospitalization)
  Sender: FDA-Public Use
  Company Number: 2004071990

PATIENT
  Age: 56 Year
  Sex: Female

DRUGS (1)
  1. DILANTIN KAPSEAL [Suspect]
     Indication: ILL-DEFINED DISORDER

REACTIONS (5)
  - ATAXIA [None]
  - BLOOD ALBUMIN DECREASED [None]
  - CONVULSION [None]
  - DRUG LEVEL INCREASED [None]
  - SEDATION [None]
